FAERS Safety Report 13227048 (Version 2)
Quarter: 2017Q3

REPORT INFORMATION
  Report Type: Spontaneous
  Country: US (occurrence: US)
  Receive Date: 20170213
  Receipt Date: 20170714
  Transmission Date: 20171127
  Serious: Yes (Other)
  Sender: FDA-Public Use
  Company Number: US-PFIZER INC-2017058466

PATIENT
  Age: 32 Year
  Sex: Female

DRUGS (2)
  1. DEPO-PROVERA [Suspect]
     Active Substance: MEDROXYPROGESTERONE ACETATE
     Indication: CONTRACEPTION
     Dosage: 150 MG/ML, UNK
     Route: 030
     Dates: start: 20040223, end: 2015
  2. DEPO-PROVERA [Suspect]
     Active Substance: MEDROXYPROGESTERONE ACETATE
     Indication: CONTRACEPTION
     Dosage: 104 MG/0.65 ML, UNK
     Route: 058
     Dates: start: 20081008, end: 2015

REACTIONS (4)
  - Tinnitus [Unknown]
  - Conductive deafness [Unknown]
  - Depression [Unknown]
  - Osteopenia [Unknown]

NARRATIVE: CASE EVENT DATE: 20151210
